FAERS Safety Report 17632166 (Version 6)
Quarter: 2021Q4

REPORT INFORMATION
  Report Type: Report from Study
  Country: IL (occurrence: IL)
  Receive Date: 20200406
  Receipt Date: 20211222
  Transmission Date: 20220303
  Serious: Yes (Other)
  Sender: FDA-Public Use
  Company Number: IL-ABBVIE-20K-082-3352685-00

PATIENT
  Age: 70 Year
  Sex: Male
  Weight: 73 kg

DRUGS (44)
  1. VENETOCLAX [Suspect]
     Active Substance: VENETOCLAX
     Indication: Acute myeloid leukaemia
     Dosage: RAMP UP
     Route: 048
     Dates: start: 20200315, end: 20200315
  2. VENETOCLAX [Suspect]
     Active Substance: VENETOCLAX
     Dosage: RAMP UP
     Route: 048
     Dates: start: 20200316, end: 20200316
  3. VENETOCLAX [Suspect]
     Active Substance: VENETOCLAX
     Dosage: MODIFICATION TO THE DAILY DOSE?RAMP UP
     Route: 048
     Dates: start: 20200317, end: 20200317
  4. VENETOCLAX [Suspect]
     Active Substance: VENETOCLAX
     Dosage: DOSE REDUCTION
     Route: 048
     Dates: start: 20200318, end: 20200318
  5. VENETOCLAX [Suspect]
     Active Substance: VENETOCLAX
     Route: 048
     Dates: start: 20200419
  6. AZACITIDINE [Suspect]
     Active Substance: AZACITIDINE
     Indication: Acute myeloid leukaemia
     Dosage: CYCLE 1
     Route: 058
     Dates: start: 20200315, end: 20200321
  7. AZACITIDINE [Suspect]
     Active Substance: AZACITIDINE
     Dosage: CYCLE 3-NO DOSE MODIFICATION/INTERRUPTION
     Route: 058
     Dates: start: 20200524, end: 20200601
  8. AZACITIDINE [Suspect]
     Active Substance: AZACITIDINE
     Dosage: CYCLE 4
     Route: 058
     Dates: start: 20200719, end: 20200723
  9. AZACITIDINE [Suspect]
     Active Substance: AZACITIDINE
     Dosage: CYCLE 5
     Route: 058
     Dates: start: 20201011, end: 20201015
  10. AZACITIDINE [Suspect]
     Active Substance: AZACITIDINE
     Dosage: CYCLE 6
     Route: 058
     Dates: start: 20201213, end: 20201217
  11. AZACITIDINE [Suspect]
     Active Substance: AZACITIDINE
     Dosage: CYCLE 7
     Route: 058
     Dates: start: 20210124, end: 20210128
  12. AZACITIDINE [Suspect]
     Active Substance: AZACITIDINE
     Dosage: CYCLE 8
     Route: 058
     Dates: start: 20210307, end: 20210311
  13. AZACITIDINE [Suspect]
     Active Substance: AZACITIDINE
     Dosage: CYCLE 9
     Route: 058
     Dates: start: 20210418, end: 20210422
  14. AZACITIDINE [Suspect]
     Active Substance: AZACITIDINE
     Dosage: CYCLE 10
     Route: 058
     Dates: start: 20210530, end: 20210603
  15. AZACITIDINE [Suspect]
     Active Substance: AZACITIDINE
     Dosage: CYCLE 11
     Route: 058
     Dates: start: 20210718, end: 20210722
  16. AZACITIDINE [Suspect]
     Active Substance: AZACITIDINE
     Dosage: CYCLE 12
     Route: 058
     Dates: start: 20210829, end: 20210902
  17. AZACITIDINE [Suspect]
     Active Substance: AZACITIDINE
     Dosage: CYCLE 13
     Route: 058
     Dates: start: 20211017, end: 20211021
  18. AZACITIDINE [Suspect]
     Active Substance: AZACITIDINE
     Dosage: CYCLE 14
     Route: 058
     Dates: start: 20211205, end: 20211209
  19. ASPIRIN [Concomitant]
     Active Substance: ASPIRIN
     Indication: Prophylaxis
     Dates: end: 20200403
  20. ASPIRIN [Concomitant]
     Active Substance: ASPIRIN
     Indication: Cardiac disorder
     Dates: start: 20200406
  21. ISOSORBIDE MONONITRATE [Concomitant]
     Active Substance: ISOSORBIDE MONONITRATE
     Indication: Cardiac disorder
  22. ISOSORBIDE MONONITRATE [Concomitant]
     Active Substance: ISOSORBIDE MONONITRATE
     Indication: Prophylaxis
  23. ATENOLOL [Concomitant]
     Active Substance: ATENOLOL
     Indication: Hypertension
  24. SIMVASTATIN [Concomitant]
     Active Substance: SIMVASTATIN
     Indication: Hyperlipidaemia
  25. ALLOPURINOL [Concomitant]
     Active Substance: ALLOPURINOL
     Indication: Prophylaxis
     Dates: start: 20200313
  26. FLUCONAZOLE [Concomitant]
     Active Substance: FLUCONAZOLE
     Indication: Antifungal prophylaxis
     Dates: start: 20200318, end: 20200403
  27. FLUCONAZOLE [Concomitant]
     Active Substance: FLUCONAZOLE
     Dates: start: 20200406, end: 20200419
  28. CIPRODEX [Concomitant]
     Active Substance: CIPROFLOXACIN HYDROCHLORIDE\DEXAMETHASONE
     Indication: Infection prophylaxis
     Dates: start: 20200318, end: 20200403
  29. AVILAC [Concomitant]
     Indication: Constipation
     Dates: start: 20200314, end: 20200314
  30. ZOFRAN [Concomitant]
     Active Substance: ONDANSETRON HYDROCHLORIDE
     Indication: Prophylaxis
     Dates: start: 20200516, end: 202005
  31. ZOFRAN [Concomitant]
     Active Substance: ONDANSETRON HYDROCHLORIDE
     Dosage: 3
     Dates: start: 20200524, end: 20200531
  32. ZOFRAN [Concomitant]
     Active Substance: ONDANSETRON HYDROCHLORIDE
     Dosage: 0
     Dates: start: 20200601, end: 20200601
  33. ZOFRAN [Concomitant]
     Active Substance: ONDANSETRON HYDROCHLORIDE
     Dates: start: 20200719, end: 20200723
  34. ZOFRAN [Concomitant]
     Active Substance: ONDANSETRON HYDROCHLORIDE
     Dates: start: 20201012, end: 20201015
  35. ZOFRAN [Concomitant]
     Active Substance: ONDANSETRON HYDROCHLORIDE
     Dates: start: 20201213, end: 20201217
  36. ZOFRAN [Concomitant]
     Active Substance: ONDANSETRON HYDROCHLORIDE
     Dates: start: 20210124, end: 20210128
  37. ZOFRAN [Concomitant]
     Active Substance: ONDANSETRON HYDROCHLORIDE
     Dates: start: 20210307, end: 20210311
  38. ZOFRAN [Concomitant]
     Active Substance: ONDANSETRON HYDROCHLORIDE
     Dates: start: 20210418, end: 20210422
  39. ZOFRAN [Concomitant]
     Active Substance: ONDANSETRON HYDROCHLORIDE
     Dates: start: 20210530, end: 20210603
  40. ZOFRAN [Concomitant]
     Active Substance: ONDANSETRON HYDROCHLORIDE
     Dates: start: 20210718, end: 20210722
  41. ZOFRAN [Concomitant]
     Active Substance: ONDANSETRON HYDROCHLORIDE
     Dates: start: 20210829, end: 20210902
  42. ZOFRAN [Concomitant]
     Active Substance: ONDANSETRON HYDROCHLORIDE
     Dates: start: 20211017, end: 20211020
  43. COVID-19 VACCINE [Concomitant]
     Indication: COVID-19 immunisation
     Route: 023
     Dates: start: 20201226, end: 20201226
  44. COVID-19 VACCINE [Concomitant]
     Route: 023
     Dates: start: 20210116, end: 20210116

REACTIONS (19)
  - Phlebitis [Not Recovered/Not Resolved]
  - Infusion site reaction [Recovering/Resolving]
  - Back pain [Recovered/Resolved]
  - Hypophosphataemia [Recovered/Resolved]
  - Nausea [Recovered/Resolved]
  - Neutropenia [Recovered/Resolved]
  - Neutrophil count decreased [Recovered/Resolved]
  - Neutrophil count decreased [Recovered/Resolved]
  - Platelet count decreased [Not Recovered/Not Resolved]
  - Thrombocytopenia [Recovered/Resolved]
  - Cytopenia [Recovered/Resolved]
  - Neutropenia [Recovered/Resolved]
  - Thrombocytopenia [Recovered/Resolved]
  - Thrombocytopenia [Recovered/Resolved]
  - Thrombocytopenia [Recovered/Resolved]
  - Neutropenia [Recovered/Resolved]
  - Thrombocytopenia [Recovered/Resolved]
  - Neutropenia [Recovered/Resolved]
  - Cytopenia [Recovered/Resolved]

NARRATIVE: CASE EVENT DATE: 20200315
